FAERS Safety Report 9116560 (Version 2)
Quarter: 2013Q1

REPORT INFORMATION
  Report Type: Spontaneous
  Country: US (occurrence: US)
  Receive Date: 20130225
  Receipt Date: 20130318
  Transmission Date: 20140127
  Serious: Yes (Hospitalization)
  Sender: FDA-Public Use
  Company Number: US-INCYTE CORPORATION-2012IN002663

PATIENT
  Age: 49 None
  Sex: Female
  Weight: 117.7 kg

DRUGS (23)
  1. JAKAFI [Suspect]
     Indication: MYELOFIBROSIS
     Dosage: 20 MG, BID
     Route: 048
     Dates: start: 201210, end: 20121214
  2. JAKAFI [Suspect]
     Dosage: 10 MG, BID
     Route: 048
     Dates: start: 20130102, end: 20130205
  3. JAKAFI [Suspect]
     Dosage: 5 MG, BID
     Route: 048
     Dates: start: 20130206, end: 20130212
  4. JAKAFI [Suspect]
     Dosage: 5 MG IN AM + 10 MG IN PM
     Route: 048
     Dates: start: 20130213
  5. METOPROLOL [Concomitant]
     Dosage: 50 MG, QD
  6. PEG [Concomitant]
     Dosage: 17 G, QD
  7. NORVASC [Concomitant]
     Dosage: 10 MG, QD
  8. VALSARTAN [Concomitant]
     Dosage: 160 MG, QD
  9. LASIX [Concomitant]
     Dosage: 20 MG, QD
  10. PRILOSEC [Concomitant]
     Dosage: 20 MG, QD
  11. FERROUS SULFATE [Concomitant]
     Dosage: 325 MG, BID
  12. LIPITOR [Concomitant]
     Dosage: 20 MG, AT BEDTIME
  13. ZOLPIDEM [Concomitant]
     Dosage: 5 MG, AT BEDTIME
  14. FLUTICASONE W/SALMETEROL [Concomitant]
     Dosage: 1 PUFF, BID
  15. ALBUTEROL [Concomitant]
     Dosage: 2 PUFFS EVERY 6 HOURS
  16. TYLENOL [Concomitant]
     Dosage: 650 MG, EVERY 6 HOURS
  17. MIRALAX [Concomitant]
     Dosage: 17 G, QD
  18. BENICAR [Concomitant]
     Dosage: 40 MG, QD
  19. AMBIEN [Concomitant]
     Dosage: 5 MG, AT BEDTIME
  20. ADVAIR [Concomitant]
     Dosage: 1 PUFF, BID (250/50 MCG)
  21. BENADRYL [Concomitant]
     Dosage: 25 MG, PRN
     Route: 048
  22. TRAZODONE [Concomitant]
     Dosage: 100-200 MG, PRN
  23. TRILEPTAL [Concomitant]
     Dosage: 600 MG, AT NIGHT

REACTIONS (20)
  - Pancytopenia [Recovered/Resolved]
  - Anaemia [Recovered/Resolved]
  - Thrombocytopenia [Recovering/Resolving]
  - Urinary tract infection [Unknown]
  - Fatigue [Not Recovered/Not Resolved]
  - Dyspnoea exertional [Unknown]
  - Pyrexia [Unknown]
  - Chills [Unknown]
  - Oropharyngeal pain [Unknown]
  - Back pain [Unknown]
  - Abdominal pain upper [Unknown]
  - Headache [Unknown]
  - Asthenia [Unknown]
  - Pollakiuria [Unknown]
  - Urine odour abnormal [Unknown]
  - Malaise [Unknown]
  - Haematuria [Unknown]
  - Nausea [Unknown]
  - Cough [Unknown]
  - Rhinorrhoea [Unknown]
